FAERS Safety Report 6273526-6 (Version None)
Quarter: 2009Q3

REPORT INFORMATION
  Report Type: 
  Country: None (occurrence: None)
  Receive Date: 20090715
  Receipt Date: 20090206
  Transmission Date: 20100115
  Serious: Yes (Other)
  Sender: FDA-Public Use
  Company Number: US-JNJFOC-20090202433

PATIENT
  Age: 39 Year
  Sex: Female
  Weight: 67.1324 kg

DRUGS (2)
  1. MOTRIN IB [Suspect]
     Indication: PAIN
     Dosage: 400 MG 2-3 TIMES/DAY FOR APPROXIMATELY ONE WEEK
     Dates: start: 20081201, end: 20081224
  2. DIOVAN [Concomitant]

REACTIONS (1)
  - GASTROINTESTINAL HAEMORRHAGE [None]
